FAERS Safety Report 17739919 (Version 1)
Quarter: 2020Q2

REPORT INFORMATION
  Report Type: Spontaneous
  Country: US (occurrence: US)
  Receive Date: 20200502
  Receipt Date: 20200502
  Transmission Date: 20200714
  Serious: Yes (Disabling)
  Sender: FDA-Public Use
  Company Number: None

PATIENT
  Age: 39 Year
  Sex: Male
  Weight: 83.25 kg

DRUGS (4)
  1. DUPIXENT [Suspect]
     Active Substance: DUPILUMAB
     Indication: ECZEMA
     Dates: start: 20190101, end: 20200302
  2. ENTYVIO [Concomitant]
     Active Substance: VEDOLIZUMAB
  3. LOPERAMIDE [Concomitant]
     Active Substance: LOPERAMIDE
  4. SYMBICORT [Concomitant]
     Active Substance: BUDESONIDE\FORMOTEROL FUMARATE DIHYDRATE

REACTIONS (3)
  - Eye disorder [None]
  - Blepharitis [None]
  - Eyelids pruritus [None]

NARRATIVE: CASE EVENT DATE: 20190617
